FAERS Safety Report 5836764-X (Version None)
Quarter: 2008Q3

REPORT INFORMATION
  Report Type: 
  Country: None (occurrence: None)
  Receive Date: 20080807
  Receipt Date: 20080729
  Transmission Date: 20090109
  Serious: Yes (Hospitalization)
  Sender: FDA-Public Use
  Company Number: DE-ABBOTT-08P-062-0451928-00

PATIENT
  Sex: Female
  Weight: 90 kg

DRUGS (17)
  1. HUMIRA [Suspect]
     Indication: RHEUMATOID ARTHRITIS
     Route: 058
     Dates: start: 20061101, end: 20070312
  2. HUMIRA [Suspect]
     Indication: POLYMYALGIA RHEUMATICA
  3. PREDNISOLONE [Suspect]
     Indication: RHEUMATOID ARTHRITIS
     Dosage: 5-30 MG / DAILY
     Route: 048
     Dates: start: 20060610
  4. PREDNISOLONE [Suspect]
     Indication: POLYMYALGIA RHEUMATICA
  5. METHOTREXATE [Concomitant]
     Indication: RHEUMATOID ARTHRITIS
     Route: 058
     Dates: start: 20061031, end: 20070209
  6. METHOTREXATE [Concomitant]
     Indication: POLYMYALGIA RHEUMATICA
  7. ETORICOXIB [Concomitant]
     Indication: PAIN
     Route: 048
     Dates: start: 20070407, end: 20070411
  8. FENTANYL-100 [Concomitant]
     Indication: PAIN
     Route: 058
     Dates: start: 20070407, end: 20070506
  9. TOREM 40 [Concomitant]
     Indication: DRUG USE FOR UNKNOWN INDICATION
     Route: 048
     Dates: start: 20070705
  10. PANTOPRAZOLE SODIUM [Concomitant]
     Indication: PROPHYLAXIS AGAINST GASTROINTESTINAL ULCER
     Route: 048
     Dates: end: 20070608
  11. PANTOPRAZOLE SODIUM [Concomitant]
     Route: 048
  12. NEBIVOLOL HCL [Concomitant]
     Indication: DRUG USE FOR UNKNOWN INDICATION
     Route: 048
     Dates: start: 20070705
  13. ALLOPURINOL [Concomitant]
     Indication: DRUG USE FOR UNKNOWN INDICATION
     Route: 048
     Dates: start: 20070705
  14. NOVO-NORM [Concomitant]
     Indication: DIABETES MELLITUS
     Route: 058
     Dates: start: 20070705
  15. IBANDRONIC ACID [Concomitant]
     Indication: DRUG USE FOR UNKNOWN INDICATION
     Route: 042
     Dates: start: 20070705
  16. LIDOCAINE [Concomitant]
     Indication: OSTEOARTHRITIS
     Route: 051
  17. SOLU-DECORTINE [Concomitant]
     Indication: OSTEOARTHRITIS
     Route: 051

REACTIONS (12)
  - CARDIAC VALVE DISEASE [None]
  - DRUG INEFFECTIVE [None]
  - DUODENAL ULCER [None]
  - HYPERTENSIVE HEART DISEASE [None]
  - NAUSEA [None]
  - OEDEMA PERIPHERAL [None]
  - OSTEONECROSIS [None]
  - OSTEOPOROSIS [None]
  - RENAL IMPAIRMENT [None]
  - SPINAL FRACTURE [None]
  - THROMBOSIS [None]
  - VENTRICULAR HYPERTROPHY [None]
